FAERS Safety Report 4492515-5 (Version None)
Quarter: 2004Q4

REPORT INFORMATION
  Report Type: 
  Country: None (occurrence: None)
  Receive Date: 20041029
  Receipt Date: 20041013
  Transmission Date: 20050328
  Serious: Yes (Hospitalization)
  Sender: FDA-Public Use
  Company Number: 8005941

PATIENT
  Age: 40 Year
  Sex: Male

DRUGS (5)
  1. KEPPRA [Suspect]
     Indication: EPILEPSY
     Dosage: 1000 MG 2/D PO
     Route: 048
     Dates: start: 20000101
  2. CARBAMAZEPINE [Suspect]
     Dosage: 1350 MG / D
     Dates: end: 20040324
  3. CARBAMAZEPINE [Suspect]
     Dosage: 1200 MG / M
     Dates: start: 20040325
  4. CARBAMAZEPINE [Suspect]
     Dosage: 300 MG/ D
  5. SEROQUEL [Concomitant]

REACTIONS (10)
  - ACUTE PSYCHOSIS [None]
  - ANTICONVULSANT DRUG LEVEL INCREASED [None]
  - CONVULSION [None]
  - DRUG EFFECT DECREASED [None]
  - DRUG INTERACTION [None]
  - HALLUCINATION, AUDITORY [None]
  - HOSTILITY [None]
  - LEUKOPENIA [None]
  - PERSONALITY CHANGE [None]
  - PHYSICAL EXAMINATION ABNORMAL [None]
